FAERS Safety Report 15713549 (Version 2)
Quarter: 2019Q1

REPORT INFORMATION
  Report Type: Spontaneous
  Country: US (occurrence: US)
  Receive Date: 20181212
  Receipt Date: 20190122
  Transmission Date: 20190417
  Serious: Yes (Other)
  Sender: FDA-Public Use
  Company Number: US-GLAXOSMITHKLINE-US2018GSK220741

PATIENT
  Age: 42 Year
  Sex: Female

DRUGS (3)
  1. BENLYSTA [Suspect]
     Active Substance: BELIMUMAB
     Indication: SYSTEMIC LUPUS ERYTHEMATOSUS
     Dosage: UNK UNK, CYC
     Route: 042
  2. IMURAN [Suspect]
     Active Substance: AZATHIOPRINE
     Indication: PRODUCT USED FOR UNKNOWN INDICATION
     Dosage: 2 DF, UNK
  3. IMURAN [Suspect]
     Active Substance: AZATHIOPRINE
     Dosage: 1.5 DF, UNK

REACTIONS (6)
  - Energy increased [Unknown]
  - Ill-defined disorder [Unknown]
  - Stress [Unknown]
  - Therapeutic response unexpected [Unknown]
  - Drug effect decreased [Unknown]
  - Systemic lupus erythematosus [Unknown]
